FAERS Safety Report 19902938 (Version 2)
Quarter: 2021Q4

REPORT INFORMATION
  Report Type: Spontaneous
  Country: US (occurrence: US)
  Receive Date: 20211001
  Receipt Date: 20211203
  Transmission Date: 20220303
  Serious: No
  Sender: FDA-Public Use
  Company Number: US-SA-SAC20210927001234

PATIENT
  Age: 32 Year
  Sex: Female

DRUGS (6)
  1. DUPIXENT [Suspect]
     Active Substance: DUPILUMAB
     Indication: Dermatitis atopic
     Dosage: 300 MG, QOW
     Route: 058
     Dates: start: 20180125
  2. DUPIXENT [Suspect]
     Active Substance: DUPILUMAB
     Indication: Asthma
  3. EPINEPHRINE [Concomitant]
     Active Substance: EPINEPHRINE
  4. FLUTICASONE [Concomitant]
     Active Substance: FLUTICASONE
  5. OLOPATADINE [Concomitant]
     Active Substance: OLOPATADINE
  6. PROAIR HFA [Concomitant]
     Active Substance: ALBUTEROL SULFATE
     Indication: Asthma

REACTIONS (5)
  - Asthma [Unknown]
  - Fatigue [Unknown]
  - Rash [Unknown]
  - Dermatitis atopic [Unknown]
  - Therapeutic response shortened [Unknown]
